FAERS Safety Report 19051751 (Version 1)
Quarter: 2021Q1

REPORT INFORMATION
  Report Type: Spontaneous
  Country: US (occurrence: US)
  Receive Date: 20210324
  Receipt Date: 20210324
  Transmission Date: 20210420
  Serious: No
  Sender: FDA-Public Use
  Company Number: US-BAUSCH-BL-2021-005821

PATIENT
  Age: 78 Year
  Sex: Female

DRUGS (4)
  1. LATANOPROST (SANDOZ) [Concomitant]
     Active Substance: LATANOPROST
     Indication: PRODUCT USED FOR UNKNOWN INDICATION
  2. ERYTHROMYCIN. [Suspect]
     Active Substance: ERYTHROMYCIN
     Indication: EYE DISORDER
     Route: 061
     Dates: start: 20210127, end: 20210214
  3. REFRESH OPTIVE [Concomitant]
     Active Substance: CARBOXYMETHYLCELLULOSE SODIUM\GLYCERIN
     Indication: PRODUCT USED FOR UNKNOWN INDICATION
  4. ERYTHROMYCIN. [Suspect]
     Active Substance: ERYTHROMYCIN
     Indication: ERYTHEMA OF EYELID

REACTIONS (3)
  - Product residue present [Unknown]
  - Vision blurred [Recovering/Resolving]
  - Abnormal sensation in eye [Unknown]

NARRATIVE: CASE EVENT DATE: 20210212
